FAERS Safety Report 6611372-1 (Version None)
Quarter: 2010Q1

REPORT INFORMATION
  Report Type: 
  Country: None (occurrence: None)
  Receive Date: 20100303
  Receipt Date: 20100225
  Transmission Date: 20100710
  Serious: Yes (Other)
  Sender: FDA-Public Use
  Company Number: US-BRISTOL-MYERS SQUIBB COMPANY-14941751

PATIENT
  Age: 44 Year
  Sex: Female

DRUGS (5)
  1. ABILIFY [Suspect]
     Indication: ANTIDEPRESSANT THERAPY
     Route: 048
     Dates: start: 20100107
  2. BUSPIRONE HCL [Suspect]
     Dosage: 1DF=30UNITS
  3. ANTIDEPRESSANT [Suspect]
  4. CYMBALTA [Suspect]
  5. KLONOPIN [Suspect]
     Dosage: 1DF=.5 UNITS

REACTIONS (1)
  - PSYCHOTIC DISORDER [None]
